FAERS Safety Report 23780644 (Version 2)
Quarter: 2025Q2

REPORT INFORMATION
  Report Type: Spontaneous
  Country: US (occurrence: US)
  Receive Date: 20240425
  Receipt Date: 20250515
  Transmission Date: 20250717
  Serious: No
  Sender: RANBAXY
  Company Number: US-SUN PHARMACEUTICAL INDUSTRIES LTD-2023R1-388056

PATIENT
  Sex: Female

DRUGS (2)
  1. ILUMYA [Suspect]
     Active Substance: TILDRAKIZUMAB-ASMN
     Indication: Psoriasis
     Route: 058
     Dates: start: 20240423, end: 20240423
  2. ILUMYA [Suspect]
     Active Substance: TILDRAKIZUMAB-ASMN
     Route: 058
     Dates: start: 20240423, end: 20240423

REACTIONS (5)
  - Product dose omission issue [Unknown]
  - COVID-19 [Unknown]
  - Product availability issue [Unknown]
  - Off label use [Unknown]
  - Rash [Unknown]
